FAERS Safety Report 7827389-5 (Version None)
Quarter: 2011Q4

REPORT INFORMATION
  Report Type: 
  Country: None (occurrence: None)
  Receive Date: 20111020
  Receipt Date: 20111011
  Transmission Date: 20120403
  Serious: Yes (Hospitalization)
  Sender: FDA-Public Use
  Company Number: DE-JNJFOC-20110810687

PATIENT
  Sex: Male

DRUGS (10)
  1. RISPERDAL [Suspect]
     Route: 048
  2. CLOZAPINE [Interacting]
     Indication: PRODUCT USED FOR UNKNOWN INDICATION
     Route: 065
  3. RISPERDAL [Suspect]
     Indication: AGGRESSION
     Route: 048
  4. RISPERDAL [Suspect]
     Route: 048
     Dates: start: 20110814, end: 20110822
  5. RAMIPRIL [Concomitant]
     Indication: CARDIOMYOPATHY
     Route: 048
  6. PALIPERIDONE [Suspect]
     Indication: SCHIZOPHRENIA
     Route: 030
     Dates: start: 20110810
  7. CIATYL [Interacting]
     Indication: AGGRESSION
     Route: 065
     Dates: start: 20110816
  8. PALIPERIDONE [Suspect]
     Route: 030
     Dates: start: 20110802, end: 20110802
  9. RISPERDAL [Suspect]
     Indication: SCHIZOPHRENIA
     Route: 048
     Dates: start: 20110814, end: 20110822
  10. SPIRONOLACTONE [Concomitant]
     Indication: CARDIOMYOPATHY
     Route: 048

REACTIONS (7)
  - DIARRHOEA [None]
  - BLOOD PRESSURE INCREASED [None]
  - DRUG INTERACTION [None]
  - MEMORY IMPAIRMENT [None]
  - PSYCHOTIC DISORDER [None]
  - SKIN DISCOLOURATION [None]
  - INAPPROPRIATE ANTIDIURETIC HORMONE SECRETION [None]
